FAERS Safety Report 6022405-8 (Version None)
Quarter: 2008Q4

REPORT INFORMATION
  Report Type: 
  Country: None (occurrence: None)
  Receive Date: 20081223
  Receipt Date: 20081223
  Transmission Date: 20090506
  Serious: Yes (Other)
  Sender: FDA-Public Use
  Company Number: None

PATIENT
  Sex: Female
  Weight: 58.9676 kg

DRUGS (1)
  1. OCELLA 3 MG BARR LABORATORIES [Suspect]
     Indication: CONTRACEPTION
     Dosage: 3 MG 1 PILL PER DAY PO
     Route: 048
     Dates: start: 20080801, end: 20081222

REACTIONS (3)
  - ALOPECIA [None]
  - BREAST TENDERNESS [None]
  - PRODUCT QUALITY ISSUE [None]
